FAERS Safety Report 4869603-4 (Version None)
Quarter: 2005Q4

REPORT INFORMATION
  Report Type: 
  Country: None (occurrence: None)
  Receive Date: 20051227
  Receipt Date: 20051219
  Transmission Date: 20060501
  Serious: Yes (Other)
  Sender: FDA-Public Use
  Company Number: 2005169602

PATIENT
  Age: 41 Year
  Sex: Female
  Weight: 68.0396 kg

DRUGS (1)
  1. UNISOM                             (DIPHENHYDRAMINE) [Suspect]
     Indication: INTENTIONAL OVERDOSE
     Dosage: 20 TABLETS ONCE TODAY, ORAL
     Route: 048
     Dates: start: 20051219, end: 20051219

REACTIONS (3)
  - HYPERSOMNIA [None]
  - INTENTIONAL OVERDOSE [None]
  - SELF-MEDICATION [None]
